FAERS Safety Report 4550257-1 (Version None)
Quarter: 2004Q4

REPORT INFORMATION
  Report Type: 
  Country: None (occurrence: None)
  Receive Date: 20041227
  Receipt Date: 20041115
  Transmission Date: 20050328
  Serious: No
  Sender: FDA-Public Use
  Company Number: 04P-163-0280495-00

PATIENT
  Age: 74 Year
  Sex: Female
  Weight: 78.0187 kg

DRUGS (16)
  1. HUMIRA [Suspect]
     Indication: RHEUMATOID ARTHRITIS
     Dosage: 40 MG, 1 IN 1 WK, SUBCUTANEOUS
     Route: 058
     Dates: start: 20030101, end: 20041118
  2. DILTIAZEM HYDROCHLORIDE [Concomitant]
  3. ASPIRIN [Concomitant]
  4. FUROSEMIDE [Concomitant]
  5. POTASSIUM CHLORIDE [Concomitant]
  6. SIMVASTATIN [Concomitant]
  7. ALENDRONATE SODIUM [Concomitant]
  8. IPATROPIUM BROMIDE [Concomitant]
  9. ALBUTEROL [Concomitant]
  10. METHOTREXATE SODIUM [Concomitant]
  11. FOLIC ACID [Concomitant]
  12. NAPROXEN SODIUM [Concomitant]
  13. MULTIVITAMIN [Concomitant]
  14. CALCIUM WITH VITAMIN D [Concomitant]
  15. ASCORBIC ACID [Concomitant]
  16. ERGOCALCIFEROL [Concomitant]

REACTIONS (1)
  - TOOTH ABSCESS [None]
